FAERS Safety Report 16541210 (Version 11)
Quarter: 2021Q1

REPORT INFORMATION
  Report Type: Report from Study
  Country: CL (occurrence: CL)
  Receive Date: 20190708
  Receipt Date: 20210316
  Transmission Date: 20210419
  Serious: Yes (Life-Threatening, Hospitalization, Other)
  Sender: FDA-Public Use
  Company Number: CL-BRISTOL-MYERS SQUIBB COMPANY-BMS-2019-034418

PATIENT
  Age: 80 Year
  Sex: Male
  Weight: 88 kg

DRUGS (9)
  1. NIVOLUMAB [Suspect]
     Active Substance: NIVOLUMAB
     Dosage: 480 MILLIGRAM
     Route: 065
     Dates: start: 20190226, end: 20190226
  2. RUCAPARIB [Suspect]
     Active Substance: RUCAPARIB
     Dosage: 1200 MILLIGRAM
     Route: 065
     Dates: end: 20181122
  3. RUCAPARIB [Suspect]
     Active Substance: RUCAPARIB
     Dosage: 1000 MILLIGRAM
     Route: 065
     Dates: start: 20190226, end: 20190325
  4. RUCAPARIB [Suspect]
     Active Substance: RUCAPARIB
     Dosage: UNK
     Route: 065
     Dates: start: 20190218, end: 20190224
  5. RUCAPARIB [Suspect]
     Active Substance: RUCAPARIB
     Dosage: 500 MILLIGRAM
     Route: 065
     Dates: start: 20190324, end: 20190324
  6. NACL [Concomitant]
     Active Substance: SODIUM CHLORIDE
     Indication: PRODUCT USED FOR UNKNOWN INDICATION
     Dosage: 1500 ABSENT
     Route: 042
     Dates: start: 20190325, end: 20190325
  7. LOSARTAN. [Concomitant]
     Active Substance: LOSARTAN
     Indication: PRODUCT USED FOR UNKNOWN INDICATION
     Dosage: 50 MILLIGRAM
     Route: 048
     Dates: start: 2014
  8. NIVOLUMAB [Suspect]
     Active Substance: NIVOLUMAB
     Indication: PROSTATE CANCER METASTATIC
     Dosage: 480 MILLIGRAM
     Route: 065
     Dates: start: 20181023, end: 20181023
  9. RUCAPARIB [Suspect]
     Active Substance: RUCAPARIB
     Indication: PROSTATE CANCER METASTATIC
     Dosage: 600 MILLIGRAM
     Route: 065
     Dates: start: 20181023, end: 20181023

REACTIONS (2)
  - Neutropenia [Recovered/Resolved]
  - Acute kidney injury [Recovering/Resolving]

NARRATIVE: CASE EVENT DATE: 20190325
